FAERS Safety Report 14431002 (Version 1)
Quarter: 2018Q1

REPORT INFORMATION
  Report Type: Spontaneous
  Country: FR (occurrence: FR)
  Receive Date: 20180124
  Receipt Date: 20180124
  Transmission Date: 20180509
  Serious: Yes (Hospitalization)
  Sender: FDA-Public Use
  Company Number: FR-MERCK KGAA-2040690

PATIENT
  Age: 70 Year
  Sex: Male

DRUGS (1)
  1. NOVOTHYROX [Suspect]
     Active Substance: LEVOTHYROXINE SODIUM
     Indication: PRODUCT USED FOR UNKNOWN INDICATION
     Route: 048
     Dates: start: 20170615, end: 20170914

REACTIONS (9)
  - Muscle spasms [Recovering/Resolving]
  - Erectile dysfunction [Not Recovered/Not Resolved]
  - Facial paralysis [Recovered/Resolved with Sequelae]
  - Dysarthria [Recovered/Resolved]
  - Fatigue [Recovered/Resolved]
  - Nervousness [Recovered/Resolved]
  - Blood thyroid stimulating hormone increased [Recovered/Resolved]
  - Vision blurred [Recovered/Resolved]
  - Insomnia [Recovered/Resolved]

NARRATIVE: CASE EVENT DATE: 201706
